FAERS Safety Report 9275315 (Version 3)
Quarter: 2013Q4

REPORT INFORMATION
  Report Type: Spontaneous
  Country: US (occurrence: US)
  Receive Date: 20130507
  Receipt Date: 20131025
  Transmission Date: 20140711
  Serious: No
  Sender: FDA-Public Use
  Company Number: US-VERTEX PHARMACEUTICALS INC-2013-005756

PATIENT
  Age: 50 Year
  Sex: Male
  Weight: 100 kg

DRUGS (15)
  1. INCIVEK [Suspect]
     Indication: HEPATITIS C
     Dosage: 750 MG, TID
     Route: 048
     Dates: start: 201303, end: 201305
  2. PEGASYS [Suspect]
     Indication: HEPATITIS C
     Dosage: 180 ?G, QW
     Route: 058
     Dates: start: 201303, end: 201306
  3. RIBAVIRIN [Suspect]
     Indication: HEPATITIS C
     Dosage: 600 MG, BID
     Route: 048
     Dates: start: 201303, end: 201306
  4. CIPRO [Concomitant]
  5. HYDROXYZINE [Concomitant]
  6. FLONASE [Concomitant]
  7. PROZAC [Concomitant]
  8. ZYRTEC [Concomitant]
  9. OMEPRAZOLE [Concomitant]
  10. CLARITIN [Concomitant]
  11. MOTRIN [Concomitant]
  12. XANAX [Concomitant]
  13. METOPROLOL [Concomitant]
  14. ZOVIRAX [Concomitant]
  15. NORCO [Concomitant]

REACTIONS (4)
  - Semen discolouration [Recovered/Resolved]
  - Fatigue [Not Recovered/Not Resolved]
  - Thrombocytopenia [Recovered/Resolved]
  - Diarrhoea [Not Recovered/Not Resolved]
